FAERS Safety Report 9426359 (Version 1)
Quarter: 2013Q3

REPORT INFORMATION
  Report Type: Spontaneous
  Country: US (occurrence: None)
  Receive Date: 20130729
  Receipt Date: 20130729
  Transmission Date: 20140515
  Serious: No
  Sender: FDA-Public Use
  Company Number: None

PATIENT
  Age: 60 Year
  Sex: Female

DRUGS (1)
  1. OXALIPLATIN [Suspect]
     Indication: COLON CANCER
     Dates: start: 20040315, end: 20041114

REACTIONS (10)
  - Drug-induced liver injury [None]
  - Blood disorder [None]
  - Hepatic enzyme increased [None]
  - Portal hypertension [None]
  - Oesophageal varices haemorrhage [None]
  - Splenomegaly [None]
  - Hepatic cirrhosis [None]
  - Hepatic fibrosis [None]
  - Oesophageal perforation [None]
  - Nodular regenerative hyperplasia [None]
